FAERS Safety Report 12431579 (Version 2)
Quarter: 2016Q3

REPORT INFORMATION
  Report Type: Spontaneous
  Country: US (occurrence: US)
  Receive Date: 20160603
  Receipt Date: 20160729
  Transmission Date: 20161109
  Serious: Yes (Other)
  Sender: FDA-Public Use
  Company Number: US-HORIZON-VIM-0081-2016

PATIENT
  Age: 64 Year
  Sex: Female
  Weight: 69 kg

DRUGS (11)
  1. VIMOVO [Suspect]
     Active Substance: ESOMEPRAZOLE MAGNESIUM\NAPROXEN
     Indication: TENDONITIS
     Dosage: 375/20 MG TABLETS BID
     Dates: start: 20160307
  2. ATORVASTATIN [Concomitant]
     Active Substance: ATORVASTATIN
  3. ASPIRIN. [Concomitant]
     Active Substance: ASPIRIN
  4. PROAIR HFA [Concomitant]
     Active Substance: ALBUTEROL SULFATE
  5. ADVAIR HFA [Concomitant]
     Active Substance: FLUTICASONE PROPIONATE\SALMETEROL XINAFOATE
  6. VITAFUSION [Concomitant]
  7. CALCIUM [Concomitant]
     Active Substance: CALCIUM
  8. MOTRIN [Concomitant]
     Active Substance: IBUPROFEN
  9. METOPROLOL. [Concomitant]
     Active Substance: METOPROLOL
  10. LEVOCETIRIZINE [Concomitant]
     Active Substance: LEVOCETIRIZINE
  11. VITAMIN D [Concomitant]
     Active Substance: CHOLECALCIFEROL

REACTIONS (5)
  - Peripheral swelling [Unknown]
  - Drug intolerance [Unknown]
  - Rectal haemorrhage [Unknown]
  - Pain [Unknown]
  - Off label use [Unknown]
